FAERS Safety Report 21681972 (Version 1)
Quarter: 2022Q4

REPORT INFORMATION
  Report Type: Spontaneous
  Country: US (occurrence: US)
  Receive Date: 20221205
  Receipt Date: 20221205
  Transmission Date: 20230113
  Serious: Yes (Hospitalization)
  Sender: FDA-Public Use
  Company Number: US-BRISTOL-MYERS SQUIBB COMPANY-2022-145570

PATIENT
  Age: 71 Year
  Sex: Female

DRUGS (3)
  1. POMALYST [Suspect]
     Active Substance: POMALIDOMIDE
     Indication: Primary amyloidosis
     Dosage: DOSE : 3 MG;     FREQ : ONCE DAILY FOR 14 DAYS AND 14 DAYS OFF
     Route: 048
     Dates: start: 202103
  2. POMALYST [Suspect]
     Active Substance: POMALIDOMIDE
     Indication: Anaemia
  3. POMALYST [Suspect]
     Active Substance: POMALIDOMIDE
     Indication: Chronic kidney disease

REACTIONS (3)
  - Dyspnoea [Unknown]
  - Headache [Unknown]
  - Off label use [Unknown]
